FAERS Safety Report 8436629-3 (Version None)
Quarter: 2012Q2

REPORT INFORMATION
  Report Type: 
  Country: None (occurrence: None)
  Receive Date: 20120323
  Receipt Date: 20110623
  Transmission Date: 20120825
  Serious: Yes (Other)
  Sender: FDA-Public Use
  Company Number: 163-21880-11063287

PATIENT
  Age: 80 Year
  Sex: Female

DRUGS (9)
  1. ASPIRIN [Concomitant]
  2. CALCIUM WITH VITAMIN D (CALCIUM WITH VITAMIN D) [Concomitant]
  3. LISINOPRIL [Concomitant]
  4. COREG [Concomitant]
  5. LIPITOR [Concomitant]
  6. REVLIMID [Suspect]
     Indication: MULTIPLE MYELOMA
     Dosage: 15 MG, QD X 21 DAYS, WITH 7 DAY BREAK, PO 10 MG, 1 IN 1 D, PO
     Route: 048
     Dates: start: 20110601, end: 20110601
  7. REVLIMID [Suspect]
     Indication: MULTIPLE MYELOMA
     Dosage: 15 MG, QD X 21 DAYS, WITH 7 DAY BREAK, PO 10 MG, 1 IN 1 D, PO
     Route: 048
     Dates: start: 20110525
  8. DEXAMETHASONE [Concomitant]
  9. VITAMIN D [Concomitant]

REACTIONS (1)
  - PANCYTOPENIA [None]
